FAERS Safety Report 15210823 (Version 1)
Quarter: 2018Q3

REPORT INFORMATION
  Report Type: Spontaneous
  Country: US (occurrence: US)
  Receive Date: 20180629
  Receipt Date: 20180629
  Transmission Date: 20181010
  Serious: Yes (Disabling)
  Sender: FDA-Public Use
  Company Number: None

PATIENT
  Sex: Female

DRUGS (6)
  1. FLUTICASONE PROPIONATE NASALSPRAY USP 50MCG LOT@NJ4501 NDC60505?0829?1 [Suspect]
     Active Substance: FLUTICASONE PROPIONATE
  2. EQUATE ALLERGY RELIEF [Concomitant]
  3. ASPIRIN. [Concomitant]
     Active Substance: ASPIRIN
  4. ANTI?ACID MEDICINES [Concomitant]
  5. EQUATE IBUPROFEN [Concomitant]
     Active Substance: IBUPROFEN
  6. EQUATE SLEEP AID [Concomitant]
     Active Substance: DOXYLAMINE SUCCINATE

REACTIONS (5)
  - Product contamination physical [None]
  - Epistaxis [None]
  - Product use issue [None]
  - Sinusitis [None]
  - Parosmia [None]
